FAERS Safety Report 12328680 (Version 1)
Quarter: 2016Q2

REPORT INFORMATION
  Report Type: Spontaneous
  Country: US (occurrence: US)
  Receive Date: 20160503
  Receipt Date: 20160503
  Transmission Date: 20160815
  Serious: No
  Sender: FDA-Public Use
  Company Number: US-BEH-2015050119

PATIENT
  Age: 54 Year
  Sex: Female
  Weight: 64 kg

DRUGS (29)
  1. ZOFRAN [Concomitant]
     Active Substance: ONDANSETRON HYDROCHLORIDE
  2. COUMADIN [Concomitant]
     Active Substance: WARFARIN SODIUM
  3. ZITHROMAX [Concomitant]
     Active Substance: AZITHROMYCIN DIHYDRATE
  4. LISINOPRIL. [Concomitant]
     Active Substance: LISINOPRIL
  5. BENADRYL ALLERGY [Concomitant]
     Active Substance: DIPHENHYDRAMINE HYDROCHLORIDE
     Dosage: 25 MG KAPGELS
  6. TOPAMAX [Concomitant]
     Active Substance: TOPIRAMATE
  7. HIZENTRA [Suspect]
     Active Substance: HUMAN IMMUNOGLOBULIN G
     Indication: IMMUNODEFICIENCY COMMON VARIABLE
     Route: 058
  8. SUCRALFATE. [Concomitant]
     Active Substance: SUCRALFATE
  9. LISINOPRIL. [Concomitant]
     Active Substance: LISINOPRIL
  10. DIAZEPAM. [Concomitant]
     Active Substance: DIAZEPAM
  11. POTASSIUM [Concomitant]
     Active Substance: POTASSIUM
  12. ENULOSE [Concomitant]
     Active Substance: LACTULOSE
  13. OXYGEN. [Concomitant]
     Active Substance: OXYGEN
  14. METHADOSE [Concomitant]
     Active Substance: METHADONE HYDROCHLORIDE
  15. OSTEO BI-FLEX [Concomitant]
     Active Substance: CHONDROITIN SULFATE A\GLUCOSAMINE
  16. NORCO [Concomitant]
     Active Substance: ACETAMINOPHEN\HYDROCODONE BITARTRATE
  17. PHOSPHATE IRON [Concomitant]
  18. HEPARIN [Concomitant]
     Active Substance: HEPARIN SODIUM
  19. MEDICAL MARIJUANA [Concomitant]
     Active Substance: CANNABIS SATIVA SUBSP. INDICA TOP
  20. CENTRUM COMPLETE MULTIVIT TAB [Concomitant]
  21. CYMBALTA [Concomitant]
     Active Substance: DULOXETINE HYDROCHLORIDE
  22. DIPHENHYDRAMINE. [Concomitant]
     Active Substance: DIPHENHYDRAMINE
  23. METOPROLOL. [Concomitant]
     Active Substance: METOPROLOL
  24. SODIUM CHLORIDE. [Concomitant]
     Active Substance: SODIUM CHLORIDE
  25. ACETAMINOPHEN. [Concomitant]
     Active Substance: ACETAMINOPHEN
  26. EPIPEN [Concomitant]
     Active Substance: EPINEPHRINE
  27. LASIX [Concomitant]
     Active Substance: FUROSEMIDE
  28. MAG-OXIDE [Concomitant]
  29. ROCALTROL [Concomitant]
     Active Substance: CALCITRIOL

REACTIONS (1)
  - Paraesthesia [Unknown]

NARRATIVE: CASE EVENT DATE: 201503
